FAERS Safety Report 20434879 (Version 1)
Quarter: 2022Q1

REPORT INFORMATION
  Report Type: Report from Study
  Country: US (occurrence: US)
  Receive Date: 20220206
  Receipt Date: 20220206
  Transmission Date: 20220423
  Serious: Yes (Other)
  Sender: FDA-Public Use
  Company Number: US-NOVARTISPH-NVSC2022US021766

PATIENT
  Sex: Male

DRUGS (1)
  1. ENTRESTO [Suspect]
     Active Substance: SACUBITRIL\VALSARTAN
     Indication: Product used for unknown indication
     Dosage: 24 MG SACUBITRIL/ 26 MG VALSARTAN BID
     Route: 048

REACTIONS (3)
  - Thrombosis [Unknown]
  - Aortic aneurysm [Unknown]
  - Blood pressure difference of extremities [Unknown]
